FAERS Safety Report 7817347-9 (Version None)
Quarter: 2011Q4

REPORT INFORMATION
  Report Type: 
  Country: None (occurrence: None)
  Receive Date: 20111017
  Receipt Date: 20111004
  Transmission Date: 20120403
  Serious: Yes (Hospitalization, Other)
  Sender: FDA-Public Use
  Company Number: US-ELI_LILLY_AND_COMPANY-US201104004032

PATIENT
  Sex: Female

DRUGS (13)
  1. ASPIRIN [Concomitant]
     Dosage: 325 MG, UNK
  2. FORTEO [Suspect]
     Indication: OSTEOPOROSIS
     Dosage: 20 UG, QD
     Dates: start: 20110407, end: 20110422
  3. ACETAMINOPHEN AND HYDROCODONE BITARTRATE [Concomitant]
  4. LUTEIN [Concomitant]
     Indication: EYE DISORDER
  5. CENTRUM [Concomitant]
  6. ANALGESICS [Concomitant]
     Indication: PAIN
  7. AMLODIPINE [Concomitant]
  8. CALCIUM CARBONATE [Concomitant]
  9. MAGNESIUM [Concomitant]
  10. BONIVA [Concomitant]
  11. XALATAN [Concomitant]
     Indication: EYE DISORDER
  12. METOPROLOL TARTRATE [Concomitant]
  13. REQUIP [Concomitant]

REACTIONS (11)
  - HYPOKINESIA [None]
  - CEREBROVASCULAR ACCIDENT [None]
  - INJECTION SITE ERYTHEMA [None]
  - MEMORY IMPAIRMENT [None]
  - BRADYPHRENIA [None]
  - DYSPHONIA [None]
  - HEMIPARESIS [None]
  - COUGH [None]
  - DYSARTHRIA [None]
  - VIITH NERVE PARALYSIS [None]
  - GAIT DISTURBANCE [None]
